FAERS Safety Report 10025446 (Version 1)
Quarter: 2014Q1

REPORT INFORMATION
  Report Type: Spontaneous
  Country: US (occurrence: None)
  Receive Date: 20140319
  Receipt Date: 20140319
  Transmission Date: 20141002
  Serious: Yes (Hospitalization)
  Sender: FDA-Public Use
  Company Number: None

PATIENT
  Age: 64 Year
  Sex: Male

DRUGS (1)
  1. ISOSORBIDE MONONITRATE [Suspect]
     Indication: CARDIAC FAILURE CONGESTIVE
     Route: 048
     Dates: start: 20130531, end: 20130611

REACTIONS (5)
  - Hyperhidrosis [None]
  - Dizziness [None]
  - Orthostatic hypotension [None]
  - Sinus bradycardia [None]
  - Bundle branch block left [None]
